FAERS Safety Report 6186284-0 (Version None)
Quarter: 2009Q2

REPORT INFORMATION
  Report Type: 
  Country: None (occurrence: None)
  Receive Date: 20090511
  Receipt Date: 20090507
  Transmission Date: 20091009
  Serious: Yes (Other)
  Sender: FDA-Public Use
  Company Number: US-PURDUE-USA_2008_0036125

PATIENT
  Age: 50 Year
  Sex: Female

DRUGS (5)
  1. OXYCONTIN [Suspect]
     Indication: NEUROPATHY PERIPHERAL
     Dosage: 80 MG, TID
     Dates: start: 20040901
  2. COUMADIN [Concomitant]
     Indication: FACTOR V DEFICIENCY
     Dates: start: 20040101, end: 20080301
  3. KLONOPIN [Concomitant]
     Indication: ANXIETY
  4. LEXAPRO [Concomitant]
     Indication: DEPRESSION
  5. OXYCODONE HCL [Concomitant]
     Indication: PAIN
     Dosage: 15 MG, UNK
     Dates: start: 20080701

REACTIONS (7)
  - DENTAL CARIES [None]
  - DROOLING [None]
  - ENAMEL ANOMALY [None]
  - ORAL PAIN [None]
  - TOOTH EXTRACTION [None]
  - TOOTH FRACTURE [None]
  - TOOTHACHE [None]
